FAERS Safety Report 25080636 (Version 1)
Quarter: 2025Q1

REPORT INFORMATION
  Report Type: Spontaneous
  Country: FR (occurrence: FR)
  Receive Date: 20250315
  Receipt Date: 20250315
  Transmission Date: 20250409
  Serious: Yes (Other)
  Sender: TEVA
  Company Number: None

PATIENT
  Age: 26 Year
  Sex: Male

DRUGS (5)
  1. CLOZAPINE [Suspect]
     Active Substance: CLOZAPINE
     Indication: Wrong patient received product
     Route: 048
     Dates: start: 20250201, end: 20250201
  2. DIAZEPAM [Suspect]
     Active Substance: DIAZEPAM
     Indication: Wrong patient received product
     Route: 048
     Dates: start: 20250201, end: 20250201
  3. CYAMEMAZINE [Suspect]
     Active Substance: CYAMEMAZINE
     Indication: Wrong patient received product
     Route: 048
     Dates: start: 20250201, end: 20250201
  4. PHENERGAN [Suspect]
     Active Substance: PROMETHAZINE HYDROCHLORIDE
     Indication: Wrong patient received product
     Route: 048
     Dates: start: 20250201, end: 20250201
  5. MESTINON [Suspect]
     Active Substance: PYRIDOSTIGMINE BROMIDE
     Indication: Wrong patient received product
     Route: 048
     Dates: start: 20250201, end: 20250201

REACTIONS (2)
  - Somnolence [Recovered/Resolved]
  - Wrong patient received product [Recovered/Resolved]

NARRATIVE: CASE EVENT DATE: 20250201
